FAERS Safety Report 6825425-6 (Version None)
Quarter: 2010Q3

REPORT INFORMATION
  Report Type: 
  Country: None (occurrence: None)
  Receive Date: 20100708
  Receipt Date: 20061207
  Transmission Date: 20110219
  Serious: No
  Sender: FDA-Public Use
  Company Number: US-PFIZER INC-2006153706

PATIENT
  Sex: Female

DRUGS (2)
  1. CHANTIX [Suspect]
     Indication: EX-TOBACCO USER
     Route: 048
     Dates: start: 20061201
  2. VITAMINS [Concomitant]
     Route: 048

REACTIONS (3)
  - DIZZINESS [None]
  - DYSGEUSIA [None]
  - FLATULENCE [None]
